FAERS Safety Report 6068272-8 (Version None)
Quarter: 2009Q1

REPORT INFORMATION
  Report Type: 
  Country: None (occurrence: None)
  Receive Date: 20090206
  Receipt Date: 20090128
  Transmission Date: 20090719
  Serious: Yes (Other)
  Sender: FDA-Public Use
  Company Number: PHEH2008US10005

PATIENT
  Sex: Female
  Weight: 96.689 kg

DRUGS (7)
  1. GLEEVEC [Suspect]
     Indication: CHRONIC MYELOID LEUKAEMIA
     Dosage: 400 MG, QD
     Route: 048
     Dates: start: 20080821, end: 20081113
  2. GLEEVEC [Suspect]
     Dosage: UNK
     Dates: start: 20081121, end: 20081124
  3. PLAVIX [Concomitant]
     Dosage: 75 MG, QD
     Route: 048
  4. ASPIRIN [Concomitant]
     Dosage: 81 MG, QD
     Route: 048
  5. LASIX [Concomitant]
     Dosage: 20 MG, QD
     Route: 048
  6. DARVON [Concomitant]
     Dosage: UNK
  7. POTASSIUM CHLORIDE [Concomitant]
     Dosage: 8 MEQ, UNK

REACTIONS (8)
  - CARDIAC DISORDER [None]
  - DYSPHAGIA [None]
  - EYE SWELLING [None]
  - GLOSSITIS [None]
  - PRURITUS [None]
  - RASH [None]
  - SCAR [None]
  - SWELLING FACE [None]
